FAERS Safety Report 22168364 (Version 2)
Quarter: 2024Q2

REPORT INFORMATION
  Report Type: Spontaneous
  Country: US (occurrence: US)
  Receive Date: 20230403
  Receipt Date: 20240404
  Transmission Date: 20240716
  Serious: No
  Sender: FDA-Public Use
  Company Number: US-TG THERAPEUTICS INC.-TGT002720

PATIENT
  Sex: Female

DRUGS (1)
  1. BRIUMVI [Suspect]
     Active Substance: UBLITUXIMAB-XIIY
     Indication: Product used for unknown indication
     Dosage: UNK
     Route: 042
     Dates: start: 20230228

REACTIONS (2)
  - Headache [Unknown]
  - Bronchitis [Unknown]

NARRATIVE: CASE EVENT DATE: 20230301
